FAERS Safety Report 13929608 (Version 4)
Quarter: 2017Q3

REPORT INFORMATION
  Report Type: Spontaneous
  Country: NO (occurrence: NO)
  Receive Date: 20170901
  Receipt Date: 20170925
  Transmission Date: 20171127
  Serious: Yes (Hospitalization, Other)
  Sender: FDA-Public Use
  Company Number: NO-JNJFOC-20170615719

PATIENT
  Age: 60 Year
  Sex: Male

DRUGS (15)
  1. RISPERIDONE DEPOT [Suspect]
     Active Substance: RISPERIDONE
     Indication: SCHIZOPHRENIA
     Route: 065
  2. BIPERIDEN [Suspect]
     Active Substance: BIPERIDEN
     Indication: MUSCLE RIGIDITY
     Route: 065
  3. BIPERIDEN [Suspect]
     Active Substance: BIPERIDEN
     Indication: MUSCLE RIGIDITY
     Route: 065
  4. ZOPICLONE [Suspect]
     Active Substance: ZOPICLONE
     Indication: PRODUCT USED FOR UNKNOWN INDICATION
     Route: 048
  5. LINAGLIPTIN W/METFORMIN HYDROCHLORIDE [Suspect]
     Active Substance: LINAGLIPTIN\METFORMIN HYDROCHLORIDE
     Indication: PRODUCT USED FOR UNKNOWN INDICATION
     Dosage: LINAGLIPTIN (5 MG) + METFORMIN HYDROCHLORIDE (1700 MG)
     Route: 065
  6. OXAZEPAM. [Suspect]
     Active Substance: OXAZEPAM
     Indication: MUSCLE RIGIDITY
     Dosage: RECEIVED 60-80 MG DAILY AS TREATMENT FOR CONFUSION AND RIGIDITY
     Route: 048
  7. OXAZEPAM. [Suspect]
     Active Substance: OXAZEPAM
     Indication: CONFUSIONAL STATE
     Route: 048
  8. PANTOPRAZOLE [Suspect]
     Active Substance: PANTOPRAZOLE
     Indication: PRODUCT USED FOR UNKNOWN INDICATION
     Route: 048
  9. OXAZEPAM. [Suspect]
     Active Substance: OXAZEPAM
     Indication: MUSCLE RIGIDITY
     Route: 048
  10. OXAZEPAM. [Suspect]
     Active Substance: OXAZEPAM
     Indication: CONFUSIONAL STATE
     Dosage: RECEIVED 60-80 MG DAILY AS TREATMENT FOR CONFUSION AND RIGIDITY
     Route: 048
  11. BUPRENORPHINE. [Suspect]
     Active Substance: BUPRENORPHINE
     Indication: PRODUCT USED FOR UNKNOWN INDICATION
     Dosage: 15 G/HR (15181 G/HR)
     Route: 060
  12. IBUPROFEN. [Suspect]
     Active Substance: IBUPROFEN
     Indication: PRODUCT USED FOR UNKNOWN INDICATION
     Route: 048
  13. PARACETAMOL [Suspect]
     Active Substance: ACETAMINOPHEN
     Indication: PRODUCT USED FOR UNKNOWN INDICATION
     Route: 048
  14. MIRTAZAPINE. [Suspect]
     Active Substance: MIRTAZAPINE
     Indication: PRODUCT USED FOR UNKNOWN INDICATION
     Route: 048
  15. RISPERIDONE. [Concomitant]
     Active Substance: RISPERIDONE
     Route: 065

REACTIONS (19)
  - Hypokalaemia [Recovered/Resolved]
  - Neutrophilia [Recovered/Resolved]
  - Metabolic acidosis [Recovered/Resolved]
  - Transaminases increased [Recovered/Resolved]
  - Hypertension [Recovered/Resolved]
  - Altered state of consciousness [Recovered/Resolved]
  - Hyperhidrosis [Recovered/Resolved]
  - Mutism [Recovered/Resolved]
  - Musculoskeletal stiffness [Recovered/Resolved]
  - Blood creatine phosphokinase increased [Recovered/Resolved]
  - Muscle rigidity [Recovered/Resolved]
  - Pyrexia [Recovered/Resolved]
  - Diarrhoea [Recovered/Resolved]
  - Neuroleptic malignant syndrome [Recovered/Resolved]
  - Dysphagia [Recovered/Resolved]
  - Confusional state [Recovered/Resolved]
  - Tachycardia [Recovered/Resolved]
  - Leukocytosis [Recovered/Resolved]
  - Hypernatraemia [Recovered/Resolved]
